FAERS Safety Report 9174543 (Version 1)
Quarter: 2013Q1

REPORT INFORMATION
  Report Type: Spontaneous
  Country: US (occurrence: US)
  Receive Date: 20130320
  Receipt Date: 20130320
  Transmission Date: 20140127
  Serious: No
  Sender: FDA-Public Use
  Company Number: US-MYLANLABS-2012S1020038

PATIENT
  Age: 85 Year
  Sex: Female

DRUGS (11)
  1. ESTRADIOL TRANSDERMAL SYSTEM, USP [Suspect]
     Indication: HORMONE REPLACEMENT THERAPY
     Dosage: Q WEEK
     Route: 062
     Dates: start: 20120611, end: 20120921
  2. ESTRADIOL TRANSDERMAL SYSTEM, USP [Suspect]
     Indication: HOT FLUSH
     Dosage: Q WEEK
     Route: 062
     Dates: start: 20120611, end: 20120921
  3. ESTRADIOL TRANSDERMAL SYSTEM, USP [Suspect]
     Indication: SYNCOPE
     Dosage: Q WEEK
     Route: 062
     Dates: start: 20120611, end: 20120921
  4. ESTRADIOL TRANSDERMAL SYSTEM, USP [Suspect]
     Indication: HORMONE REPLACEMENT THERAPY
     Dosage: Q WEEK
     Route: 062
     Dates: start: 20120611, end: 20120921
  5. ESTRADIOL TRANSDERMAL SYSTEM, USP [Suspect]
     Indication: HOT FLUSH
     Dosage: Q WEEK
     Route: 062
     Dates: start: 20120611, end: 20120921
  6. ESTRADIOL TRANSDERMAL SYSTEM, USP [Suspect]
     Indication: SYNCOPE
     Dosage: Q WEEK
     Route: 062
     Dates: start: 20120611, end: 20120921
  7. CLARITIN /00413701/ [Concomitant]
  8. LISINOPRIL [Concomitant]
  9. FLUTICASONE [Concomitant]
  10. METAMUCIL [Concomitant]
  11. CALCIUM [Concomitant]

REACTIONS (4)
  - Application site pain [Recovered/Resolved]
  - Application site pruritus [Recovered/Resolved]
  - Application site erythema [Recovered/Resolved]
  - Application site exfoliation [Recovered/Resolved]
